FAERS Safety Report 24270063 (Version 3)
Quarter: 2024Q3

REPORT INFORMATION
  Report Type: Spontaneous
  Country: IT (occurrence: IT)
  Receive Date: 20240830
  Receipt Date: 20240923
  Transmission Date: 20241017
  Serious: Yes (Life-Threatening, Other)
  Sender: TEVA
  Company Number: IT-MLMSERVICE-20240702-PI115472-00101-3

PATIENT
  Age: 13 Year
  Sex: Male

DRUGS (6)
  1. BENDAMUSTINE [Suspect]
     Active Substance: BENDAMUSTINE
     Indication: Hodgkin^s disease nodular sclerosis stage IV
     Dosage: TIME INTERVAL: 1 CYCLICAL: 2 CYCLES, (90 MG/M2 , DAYS 1 AND 2)
     Route: 042
  2. BRENTUXIMAB VEDOTIN [Suspect]
     Active Substance: BRENTUXIMAB VEDOTIN
     Indication: Hodgkin^s disease refractory
     Dosage: 4 CYCLES, BV-DHAP
     Route: 065
  3. BRENTUXIMAB VEDOTIN [Suspect]
     Active Substance: BRENTUXIMAB VEDOTIN
     Indication: Hodgkin^s disease refractory
     Dosage: TIME INTERVAL: 1 CYCLICAL: 2 CYCLES OF BV (1.8 MG/KG, I. V., DAY 1)
     Route: 042
  4. DEXAMETHASONE ACETATE [Suspect]
     Active Substance: DEXAMETHASONE ACETATE
     Indication: Hodgkin^s disease recurrent
     Dosage: 4 CYCLES
     Route: 065
  5. CISPLATIN [Suspect]
     Active Substance: CISPLATIN
     Indication: Hodgkin^s disease recurrent
     Dosage: 4 CYCLES
     Route: 065
  6. CYTARABINE [Suspect]
     Active Substance: CYTARABINE
     Indication: Hodgkin^s disease nodular sclerosis stage IV
     Dosage: 4 CYCLES, HIGH-DOSE
     Route: 065

REACTIONS (6)
  - Alanine aminotransferase increased [Unknown]
  - Off label use [Unknown]
  - Neutropenia [Unknown]
  - Thrombocytopenia [Unknown]
  - Anaemia [Unknown]
  - Hodgkin^s disease recurrent [Recovered/Resolved]
